FAERS Safety Report 15826324 (Version 4)
Quarter: 2019Q1

REPORT INFORMATION
  Report Type: Spontaneous
  Country: IS (occurrence: IS)
  Receive Date: 20190115
  Receipt Date: 20190210
  Transmission Date: 20190417
  Serious: Yes (Hospitalization, Other)
  Sender: FDA-Public Use
  Company Number: PHHY2019IS005387

PATIENT
  Age: 60 Year
  Sex: Female

DRUGS (6)
  1. METOPROLOL. [Suspect]
     Active Substance: METOPROLOL
     Indication: TACHYCARDIA
     Dosage: 2 MG, UNK
     Route: 042
  2. ACETYLSALICYLIC ACID [Suspect]
     Active Substance: ASPIRIN
     Indication: ANTIPLATELET THERAPY
     Dosage: UNK
     Route: 065
  3. METOPROLOL. [Suspect]
     Active Substance: METOPROLOL
     Dosage: 1 MG, UNK
     Route: 042
  4. VASOPRESSIN. [Suspect]
     Active Substance: VASOPRESSIN
     Indication: PRODUCT USED FOR UNKNOWN INDICATION
     Dosage: UNK
     Route: 065
  5. NORADRENALIN [Suspect]
     Active Substance: NOREPINEPHRINE\NOREPINEPHRINE BITARTRATE
     Indication: PRODUCT USED FOR UNKNOWN INDICATION
     Dosage: UNK
     Route: 065
  6. ENOXAPARIN [Suspect]
     Active Substance: ENOXAPARIN
     Indication: ANTICOAGULANT THERAPY
     Dosage: UNK
     Route: 065

REACTIONS (19)
  - Acute myocardial infarction [Unknown]
  - Cyanosis [Recovering/Resolving]
  - Electrocardiogram ST segment elevation [Recovering/Resolving]
  - Shock [Recovering/Resolving]
  - Haemoglobin decreased [Recovering/Resolving]
  - Necrosis [Recovering/Resolving]
  - Extremity necrosis [Unknown]
  - Vital functions abnormal [Recovering/Resolving]
  - Peripheral coldness [Recovering/Resolving]
  - Cognitive disorder [Not Recovered/Not Resolved]
  - Ventricular tachycardia [Recovering/Resolving]
  - Hypotension [Unknown]
  - Wernicke-Korsakoff syndrome [Recovering/Resolving]
  - Haemorrhage [Recovering/Resolving]
  - Septic shock [Recovering/Resolving]
  - Ischaemia [Recovering/Resolving]
  - Thrombosis [Recovering/Resolving]
  - Myocardial necrosis [Recovering/Resolving]
  - Drug tolerance [Unknown]
